FAERS Safety Report 9675727 (Version 1)
Quarter: 2013Q4

REPORT INFORMATION
  Report Type: Spontaneous
  Country: IL (occurrence: IL)
  Receive Date: 20131107
  Receipt Date: 20131107
  Transmission Date: 20140711
  Serious: Yes (Death, Life-Threatening)
  Sender: FDA-Public Use
  Company Number: IL-ROXANE LABORATORIES, INC.-2013-RO-01782RO

PATIENT
  Age: 75 Year
  Sex: Female

DRUGS (1)
  1. METHOTREXATE [Suspect]
     Indication: RHEUMATOID ARTHRITIS
     Dosage: 10 MG

REACTIONS (4)
  - Multi-organ failure [Fatal]
  - Prescribed overdose [Unknown]
  - Toxicity to various agents [Unknown]
  - Septic shock [Unknown]
